FAERS Safety Report 24219415 (Version 2)
Quarter: 2024Q3

REPORT INFORMATION
  Report Type: Spontaneous
  Country: GB (occurrence: GB)
  Receive Date: 20240816
  Receipt Date: 20240823
  Transmission Date: 20241016
  Serious: Yes (Other)
  Sender: FOUNDATION CONSUMER HEALTHCARE
  Company Number: GB-RICHTER-2024-GR-008473

PATIENT
  Sex: Female

DRUGS (2)
  1. LEVONORGESTREL [Suspect]
     Active Substance: LEVONORGESTREL
     Indication: Contraception
     Dosage: 1.5 MG, ONCE
     Route: 048
  2. MIRENA [Suspect]
     Active Substance: LEVONORGESTREL
     Indication: Product used for unknown indication
     Dosage: 52 MG, AT 20 MCG PER DAY
     Route: 015

REACTIONS (3)
  - Crohn^s disease [Unknown]
  - Intentional product misuse [Unknown]
  - Labelled drug-disease interaction medication error [Unknown]
